FAERS Safety Report 24001165 (Version 1)
Quarter: 2024Q2

REPORT INFORMATION
  Report Type: Spontaneous
  Country: DE (occurrence: DE)
  Receive Date: 20240621
  Receipt Date: 20240621
  Transmission Date: 20240716
  Serious: Yes (Other)
  Sender: FDA-Public Use
  Company Number: DE-BRISTOL-MYERS SQUIBB COMPANY-2024- 094130

PATIENT
  Age: 74 Year
  Sex: Female

DRUGS (11)
  1. DEXAMETHASONE [Suspect]
     Active Substance: DEXAMETHASONE
     Indication: Plasma cell myeloma
     Dosage: 8 MG
     Route: 065
     Dates: start: 20220311
  2. DEXAMETHASONE [Suspect]
     Active Substance: DEXAMETHASONE
     Dosage: 8 MG LINE-1UNK
     Route: 065
     Dates: start: 20210627, end: 20220603
  3. REVLIMID [Suspect]
     Active Substance: LENALIDOMIDE
     Indication: Plasma cell myeloma
     Dosage: 10 MG
     Route: 065
     Dates: start: 20220310
  4. REVLIMID [Suspect]
     Active Substance: LENALIDOMIDE
     Dosage: 10 MG LINE-1UNK
     Route: 065
     Dates: start: 20211212, end: 20220602
  5. B12 DEPOT ROTEXMEDICA [Concomitant]
     Indication: Product used for unknown indication
     Dosage: 1000 UG
     Route: 058
     Dates: start: 20191015, end: 20230824
  6. CANDESARTAN [Concomitant]
     Active Substance: CANDESARTAN
     Indication: Product used for unknown indication
     Dosage: UNK
     Route: 048
  7. LYRICA [Concomitant]
     Active Substance: PREGABALIN
     Indication: Product used for unknown indication
     Dosage: 25 MG
     Route: 048
     Dates: start: 20210401
  8. Novalgin [Concomitant]
     Indication: Product used for unknown indication
     Dosage: NULL ML, FREQUENCY: AS NEEDED
     Route: 048
     Dates: start: 20200203
  9. THYROX [Concomitant]
     Indication: Product used for unknown indication
     Dosage: 50 UG, QD
     Route: 048
  10. NALOXONE HYDROCHLORIDE\TILIDINE HYDROCHLORIDE [Concomitant]
     Active Substance: NALOXONE HYDROCHLORIDE\TILIDINE HYDROCHLORIDE
     Indication: Product used for unknown indication
     Dosage: 50 MG NULL ML, FREQUENCY: AS NEEDED
     Route: 048
     Dates: start: 20200818, end: 2022
  11. ZOLPIDEM [Concomitant]
     Active Substance: ZOLPIDEM TARTRATE
     Indication: Product used for unknown indication
     Dosage: 10 MG, QD
     Route: 048
     Dates: start: 20211014

REACTIONS (2)
  - Leukopenia [Recovered/Resolved]
  - Polyneuropathy [Recovered/Resolved]

NARRATIVE: CASE EVENT DATE: 20220317
